FAERS Safety Report 21499596 (Version 1)
Quarter: 2022Q4

REPORT INFORMATION
  Report Type: Spontaneous
  Country: US (occurrence: US)
  Receive Date: 20221024
  Receipt Date: 20221024
  Transmission Date: 20230113
  Serious: Yes (Other)
  Sender: FDA-Public Use
  Company Number: US-MYLANLABS-2022M1115440

PATIENT
  Sex: Male
  Weight: 84.82 kg

DRUGS (1)
  1. LENALIDOMIDE [Suspect]
     Active Substance: LENALIDOMIDE
     Indication: Plasma cell myeloma
     Dosage: 15 MILLIGRAM, QD
     Route: 065
     Dates: start: 20220922

REACTIONS (5)
  - Myocardial infarction [Unknown]
  - Hypokalaemia [Unknown]
  - Heart rate increased [Unknown]
  - Dehydration [Unknown]
  - Fall [Unknown]
